FAERS Safety Report 6315094-6 (Version None)
Quarter: 2009Q3

REPORT INFORMATION
  Report Type: 
  Country: None (occurrence: None)
  Receive Date: 20090818
  Receipt Date: 20090818
  Transmission Date: 20100115
  Serious: Yes (Hospitalization)
  Sender: FDA-Public Use
  Company Number: None

PATIENT
  Age: 77 Year
  Sex: Male
  Weight: 93.7 kg

DRUGS (4)
  1. DECITABINE 42.6 MG DAYS 1-5 IV [Suspect]
     Indication: MYELODYSPLASTIC SYNDROME
     Dosage: DECITABINE 42.6 MG DAYS 1-5 IV, (PLUS GCSF)
     Route: 042
     Dates: start: 20090720, end: 20090724
  2. CYTARABINE [Suspect]
     Dosage: CYTARABINE 42.6 MG DAYS 1-5 IV
     Route: 042
  3. PRONTIX OD [Concomitant]
  4. NEUPOGEN [Concomitant]

REACTIONS (5)
  - CELLULITIS [None]
  - DECUBITUS ULCER [None]
  - ERYTHEMA [None]
  - NEUTROPENIA [None]
  - URINARY TRACT INFECTION [None]
